FAERS Safety Report 17852441 (Version 1)
Quarter: 2020Q2

REPORT INFORMATION
  Report Type: Report from Study
  Country: CO (occurrence: CO)
  Receive Date: 20200602
  Receipt Date: 20200602
  Transmission Date: 20200714
  Serious: Yes (Hospitalization)
  Sender: FDA-Public Use
  Company Number: NVSC2019CO091262

PATIENT

DRUGS (1)
  1. TASIGNA [Suspect]
     Active Substance: NILOTINIB
     Indication: CHRONIC MYELOID LEUKAEMIA
     Dosage: 2 DF, Q12H (2 OF 200 MG)
     Route: 065

REACTIONS (4)
  - Dyspnoea [Unknown]
  - Pulmonary oedema [Unknown]
  - Fluid retention [Unknown]
  - Oedema [Unknown]
